FAERS Safety Report 7508055-2 (Version None)
Quarter: 2011Q2

REPORT INFORMATION
  Report Type: 
  Country: None (occurrence: None)
  Receive Date: 20110527
  Receipt Date: 20110322
  Transmission Date: 20111010
  Serious: Yes (Hospitalization)
  Sender: FDA-Public Use
  Company Number: US-BAYER-2010-002085

PATIENT
  Sex: Female

DRUGS (3)
  1. LEVORA 0.15/30-21 [Concomitant]
  2. YASMIN [Suspect]
     Indication: ORAL CONTRACEPTION
  3. YAZ [Suspect]
     Indication: ORAL CONTRACEPTION
     Route: 048

REACTIONS (2)
  - GALLBLADDER INJURY [None]
  - GALLBLADDER DISORDER [None]
